FAERS Safety Report 24768008 (Version 2)
Quarter: 2024Q4

REPORT INFORMATION
  Report Type: Spontaneous
  Country: JP (occurrence: JP)
  Receive Date: 20241223
  Receipt Date: 20241226
  Transmission Date: 20250114
  Serious: Yes (Death, Other)
  Sender: MALLINCKRODT
  Company Number: JP-MALLINCKRODT-MNK202407675

PATIENT
  Sex: Male
  Weight: 3 kg

DRUGS (4)
  1. NITRIC OXIDE [Suspect]
     Active Substance: NITRIC OXIDE
     Indication: Pulmonary hypertension
     Dosage: UNKNOWN
     Route: 055
  2. OXYGEN [Suspect]
     Active Substance: OXYGEN
     Indication: Pulmonary arterial hypertension
     Dosage: UNKNOWN
  3. SILDENAFIL CITRATE [Suspect]
     Active Substance: SILDENAFIL CITRATE
     Indication: Pulmonary arterial hypertension
     Dosage: UNKNOWN
  4. BOSENTAN [Suspect]
     Active Substance: BOSENTAN
     Indication: Pulmonary arterial hypertension
     Dosage: UNKNOWN

REACTIONS (5)
  - Pulmonary hypertension [Fatal]
  - Hypoxia [Unknown]
  - Respiratory acidosis [Unknown]
  - Cyanosis [Unknown]
  - Urinary tract infection [Unknown]
